FAERS Safety Report 10366789 (Version 10)
Quarter: 2016Q2

REPORT INFORMATION
  Report Type: Report from Study
  Country: JP (occurrence: JP)
  Receive Date: 20140806
  Receipt Date: 20160531
  Transmission Date: 20160815
  Serious: Yes (Hospitalization, Other)
  Sender: FDA-Public Use
  Company Number: JP-AMGEN-JPNCT2014048595

PATIENT
  Age: 73 Year
  Sex: Female
  Weight: 42 kg

DRUGS (56)
  1. ROMIPLOSTIM [Suspect]
     Active Substance: ROMIPLOSTIM
     Dosage: 6.0 MUG/KG, QD
     Route: 058
     Dates: start: 20141106
  2. ROMIPLOSTIM [Suspect]
     Active Substance: ROMIPLOSTIM
     Dosage: 8.7 MUG/KG, Q2WK
     Route: 058
     Dates: start: 20141204
  3. CINAL [Concomitant]
     Active Substance: ASCORBIC ACID\CALCIUM PANTOTHENATE
     Indication: PROPHYLAXIS
     Dosage: UNK
     Route: 048
  4. LANSOPRAZOLE. [Concomitant]
     Active Substance: LANSOPRAZOLE
     Indication: PROPHYLAXIS
     Dosage: UNK, QD
     Route: 048
  5. VALACICLOVIR [Concomitant]
     Active Substance: VALACYCLOVIR HYDROCHLORIDE
     Indication: PROPHYLAXIS
     Dosage: UNK
     Route: 048
  6. MEROPENEM. [Concomitant]
     Active Substance: MEROPENEM
     Dosage: UNK
  7. ROMIPLOSTIM [Suspect]
     Active Substance: ROMIPLOSTIM
     Indication: PRODUCT USED FOR UNKNOWN INDICATION
     Dosage: 3.1 MUG/KG, QWK
     Route: 058
     Dates: start: 20130809
  8. ROMIPLOSTIM [Suspect]
     Active Substance: ROMIPLOSTIM
     Dosage: 6.25 MUG/KG, QWK
     Route: 058
     Dates: start: 20140327
  9. ROMIPLOSTIM [Suspect]
     Active Substance: ROMIPLOSTIM
     Dosage: 6.25 MUG/KG, QD
     Route: 058
     Dates: start: 20140717
  10. ROMIPLOSTIM [Suspect]
     Active Substance: ROMIPLOSTIM
     Dosage: 6.7 MUG/KG, Q2WK
     Route: 058
     Dates: start: 20140822
  11. GOODMIN [Concomitant]
     Active Substance: BROTIZOLAM
     Indication: INSOMNIA
     Dosage: UNK
     Route: 048
  12. VALTREX [Concomitant]
     Active Substance: VALACYCLOVIR HYDROCHLORIDE
     Indication: PROPHYLAXIS
     Dosage: UNK
     Route: 048
  13. REBAMIPIDE [Concomitant]
     Active Substance: REBAMIPIDE
     Indication: PROPHYLAXIS
  14. FLOMOX [Concomitant]
     Active Substance: CEFCAPENE PIVOXIL HYDROCHLORIDE HYDRATE
     Dosage: UNK
  15. SELBEX [Concomitant]
     Active Substance: TEPRENONE
     Indication: PROPHYLAXIS
     Dosage: UNK
     Route: 048
  16. NOVORAPID [Concomitant]
     Active Substance: INSULIN ASPART
     Indication: DIABETES MELLITUS
     Dosage: UNK
     Route: 058
  17. ROMIPLOSTIM [Suspect]
     Active Substance: ROMIPLOSTIM
     Dosage: 6.25 MUG/KG, QWK
     Route: 058
     Dates: start: 20140109
  18. ROMIPLOSTIM [Suspect]
     Active Substance: ROMIPLOSTIM
     Dosage: 5 MUG/KG, QWK
     Route: 058
     Dates: start: 20140410
  19. ROMIPLOSTIM [Suspect]
     Active Substance: ROMIPLOSTIM
     Dosage: 6.25 MUG/KG, QD
     Route: 058
     Dates: start: 20140703
  20. PREDONINE [Concomitant]
     Active Substance: PREDNISOLONE\PREDNISOLONE ACETATE\PREDNISOLONE SODIUM SUCCINATE
     Indication: IMMUNE THROMBOCYTOPENIC PURPURA
     Dosage: 5 MG, UNK
     Route: 048
     Dates: start: 20130705
  21. ARICEPT [Concomitant]
     Active Substance: DONEPEZIL HYDROCHLORIDE
     Indication: PROPHYLAXIS
  22. CEFZON [Concomitant]
     Active Substance: CEFDINIR
     Dosage: UNK
  23. GLYCYRON [Concomitant]
     Active Substance: AMMONIUM GLYCYRRHIZATE\GLYCINE\METHIONINE
     Indication: HEPATIC FUNCTION ABNORMAL
     Dosage: UNK
     Route: 048
  24. TRANSAMIN [Concomitant]
     Active Substance: TRANEXAMIC ACID
     Indication: PROPHYLAXIS
     Dosage: UNK
     Route: 048
  25. BIOFERMIN [Concomitant]
     Active Substance: BACILLUS SUBTILIS\LACTOBACILLUS ACIDOPHILUS\STREPTOCOCCUS FAECAIS
     Indication: PROPHYLAXIS
     Dosage: UNK
     Route: 048
  26. PROHEPARUM [Concomitant]
     Active Substance: CHOLINE BITARTRATE\CYSTEINE\INOSITOL\MAMMAL LIVER
     Indication: HEPATIC FUNCTION ABNORMAL
     Dosage: UNK
     Route: 048
  27. ALENDRONATE [Concomitant]
     Active Substance: ALENDRONATE SODIUM
     Indication: OSTEOPOROSIS
     Dosage: UNK
     Route: 048
  28. AMLODIPINE [Concomitant]
     Active Substance: AMLODIPINE BESYLATE
     Indication: HYPERTENSION
     Dosage: UNK, QD
     Route: 048
  29. CALONAL [Concomitant]
     Active Substance: ACETAMINOPHEN
     Dosage: UNK
  30. ROMIPLOSTIM [Suspect]
     Active Substance: ROMIPLOSTIM
     Dosage: 6.25 MUG/KG, QWK
     Route: 058
     Dates: start: 20131220
  31. ROMIPLOSTIM [Suspect]
     Active Substance: ROMIPLOSTIM
     Dosage: 6.5 MUG/KG, Q3WK
     Route: 058
     Dates: start: 20141002
  32. ROMIPLOSTIM [Suspect]
     Active Substance: ROMIPLOSTIM
     Dosage: 8.7 MUG/KG, QD
     Route: 058
     Dates: start: 20150108
  33. ROMIPLOSTIM [Suspect]
     Active Substance: ROMIPLOSTIM
     Dosage: 8.7 MUG/KG, QD
     Route: 058
     Dates: start: 20150127
  34. ROMIPLOSTIM [Suspect]
     Active Substance: ROMIPLOSTIM
     Dosage: 8.7 MUG/KG, QD
     Route: 058
     Dates: start: 20150205
  35. FENTOS [Suspect]
     Active Substance: FENTANYL
     Indication: PRODUCT USED FOR UNKNOWN INDICATION
     Dosage: UNK
     Route: 062
  36. REVOLADE [Concomitant]
     Active Substance: ELTROMBOPAG
     Indication: IMMUNE THROMBOCYTOPENIC PURPURA
     Dosage: 50 MG, UNK
     Route: 048
     Dates: start: 20120501, end: 20131028
  37. ARICEPT [Concomitant]
     Active Substance: DONEPEZIL HYDROCHLORIDE
     Indication: DEMENTIA ALZHEIMER^S TYPE
     Dosage: UNK
     Route: 048
  38. MOHRUS [Concomitant]
     Active Substance: KETOPROFEN
     Dosage: UNK
  39. ROMIPLOSTIM [Suspect]
     Active Substance: ROMIPLOSTIM
     Dosage: 5 MUG/KG, QWK
     Route: 058
     Dates: start: 20130823
  40. ROMIPLOSTIM [Suspect]
     Active Substance: ROMIPLOSTIM
     Dosage: 6.25 MUG/KG, QD
     Route: 058
     Dates: start: 20130910
  41. ROMIPLOSTIM [Suspect]
     Active Substance: ROMIPLOSTIM
     Dosage: 6.25 MUG/KG, QD
     Route: 058
     Dates: start: 20140807
  42. NESINA [Concomitant]
     Active Substance: ALOGLIPTIN BENZOATE
     Indication: DIABETES MELLITUS
     Dosage: UNK
     Route: 048
  43. CLARITH [Concomitant]
     Active Substance: CLARITHROMYCIN
     Dosage: UNK
  44. ROMIPLOSTIM [Suspect]
     Active Substance: ROMIPLOSTIM
     Dosage: 6.25 MUG/KG, QWK
     Route: 058
     Dates: start: 20131030
  45. THYRADIN S [Concomitant]
     Active Substance: LEVOTHYROXINE SODIUM
     Indication: HYPOTHYROIDISM
     Dosage: UNK
     Route: 048
  46. NOVORAPID [Concomitant]
     Active Substance: INSULIN ASPART
     Indication: DIABETES MELLITUS
     Dosage: UNK
     Route: 058
  47. MYSLEE [Concomitant]
     Active Substance: ZOLPIDEM TARTRATE
     Indication: INSOMNIA
     Dosage: UNK
     Route: 048
  48. OKINAZOLE [Concomitant]
     Dosage: UNK
  49. VASOLAN [Concomitant]
     Active Substance: VERAPAMIL HYDROCHLORIDE
     Dosage: UNK
  50. AMLODIPINE [Concomitant]
     Active Substance: AMLODIPINE BESYLATE
     Indication: PROPHYLAXIS
     Dosage: UNK
     Route: 048
  51. ROMIPLOSTIM [Suspect]
     Active Substance: ROMIPLOSTIM
     Dosage: 2.5 MUG/KG, QWK
     Route: 058
     Dates: start: 20140501
  52. ADONA [Concomitant]
     Active Substance: CARBAZOCHROME SODIUM SULFONATE
     Indication: PROPHYLAXIS
     Dosage: UNK
     Route: 048
  53. CRAVIT [Concomitant]
     Active Substance: LEVOFLOXACIN
     Indication: PROPHYLAXIS
     Dosage: UNK
     Route: 048
  54. CEPHARANTHINE [Concomitant]
     Active Substance: CEPHARANTHINE
     Indication: PROPHYLAXIS
     Dosage: UNK
     Route: 048
  55. REBAMIPIDE [Concomitant]
     Active Substance: REBAMIPIDE
     Indication: INSOMNIA
     Dosage: UNK
     Route: 048
  56. FLUCONAZOLE. [Concomitant]
     Active Substance: FLUCONAZOLE
     Indication: PROPHYLAXIS
     Dosage: UNK
     Route: 048

REACTIONS (15)
  - Pneumonia [Recovering/Resolving]
  - Supraventricular tachycardia [Recovered/Resolved]
  - Pyometra [Recovering/Resolving]
  - Oedema [Not Recovered/Not Resolved]
  - Contusion [Recovering/Resolving]
  - Constipation [Not Recovered/Not Resolved]
  - Enterocolitis [Recovered/Resolved]
  - Anaemia [Recovering/Resolving]
  - Hypertension [Recovering/Resolving]
  - Decreased appetite [Recovering/Resolving]
  - Vulvovaginal candidiasis [Recovering/Resolving]
  - Nasopharyngitis [Recovered/Resolved]
  - Vomiting [Recovered/Resolved]
  - Pain in extremity [Not Recovered/Not Resolved]
  - Dementia Alzheimer^s type [Recovering/Resolving]

NARRATIVE: CASE EVENT DATE: 20131113
